FAERS Safety Report 22258837 (Version 1)
Quarter: 2023Q2

REPORT INFORMATION
  Report Type: Spontaneous
  Country: CN (occurrence: CN)
  Receive Date: 20230427
  Receipt Date: 20230427
  Transmission Date: 20230721
  Serious: Yes (Other)
  Sender: FDA-Public Use
  Company Number: CN-SUN PHARMACEUTICAL INDUSTRIES LTD-2023R1-384273

PATIENT
  Age: 24 Year
  Sex: Male

DRUGS (5)
  1. MESALAMINE [Suspect]
     Active Substance: MESALAMINE
     Indication: Colitis ulcerative
     Dosage: 4 GRAM, DAILY
     Route: 065
  2. ACEMETACIN [Suspect]
     Active Substance: ACEMETACIN
     Indication: Colitis ulcerative
     Dosage: 180 MILLIGRAM, DAILY
     Route: 065
  3. ADALIMUMAB [Suspect]
     Active Substance: ADALIMUMAB
     Indication: Colitis ulcerative
     Dosage: UNK (40 MG, BIWEEKLY)
     Route: 058
  4. ETANERCEPT [Suspect]
     Active Substance: ETANERCEPT
     Indication: Ankylosing spondylitis
     Dosage: 50 MILLIGRAM, WEEKLY
     Route: 058
  5. ETANERCEPT [Suspect]
     Active Substance: ETANERCEPT
     Indication: Colitis ulcerative

REACTIONS (1)
  - Treatment failure [Unknown]
